FAERS Safety Report 10839448 (Version 1)
Quarter: 2015Q1

REPORT INFORMATION
  Report Type: Report from Study
  Country: US (occurrence: US)
  Receive Date: 20150220
  Receipt Date: 20150220
  Transmission Date: 20150721
  Serious: No
  Sender: FDA-Public Use
  Company Number: US-ABBVIE-14P-163-1232716-00

PATIENT
  Age: 21 Year
  Sex: Male

DRUGS (1)
  1. HUMIRA [Suspect]
     Active Substance: ADALIMUMAB
     Indication: PSORIASIS
     Dates: start: 201403

REACTIONS (4)
  - Injection site pain [Recovering/Resolving]
  - Anxiety [Recovering/Resolving]
  - Pain [Recovering/Resolving]
  - Injection site bruising [Recovered/Resolved]

NARRATIVE: CASE EVENT DATE: 201403
